FAERS Safety Report 7429347-1 (Version None)
Quarter: 2011Q2

REPORT INFORMATION
  Report Type: 
  Country: None (occurrence: None)
  Receive Date: 20110418
  Receipt Date: 20110418
  Transmission Date: 20111010
  Serious: Yes (Death, Life-Threatening, Hospitalization, Disabling, Congenital Anomaly, Other)
  Sender: FDA-Public Use
  Company Number: None

PATIENT
  Age: 33 Year
  Sex: Male
  Weight: 70.3075 kg

DRUGS (1)
  1. BENZEDREX INHALER [Suspect]

REACTIONS (8)
  - PANIC ATTACK [None]
  - INSOMNIA [None]
  - THINKING ABNORMAL [None]
  - VOMITING [None]
  - HAEMORRHAGE [None]
  - INCORRECT ROUTE OF DRUG ADMINISTRATION [None]
  - AGGRESSION [None]
  - DRUG ABUSE [None]
